FAERS Safety Report 19588703 (Version 1)
Quarter: 2021Q3

REPORT INFORMATION
  Report Type: Report from Study
  Country: US (occurrence: US)
  Receive Date: 20210721
  Receipt Date: 20210721
  Transmission Date: 20211014
  Serious: Yes (Other)
  Sender: FDA-Public Use
  Company Number: US-SA-2020SA069673

PATIENT
  Age: 78 Year
  Sex: Female

DRUGS (3)
  1. DUPILUMAB [Suspect]
     Active Substance: DUPILUMAB
     Dosage: 300 MG, QOW
     Dates: start: 20200310, end: 202106
  2. DUPILUMAB [Suspect]
     Active Substance: DUPILUMAB
     Indication: DERMATITIS ATOPIC
     Dosage: 600 MG, 1X
     Route: 058
     Dates: start: 20200212, end: 20200212
  3. DUPILUMAB [Suspect]
     Active Substance: DUPILUMAB
     Dosage: 300 MG, QOW
     Dates: start: 202002, end: 2020

REACTIONS (13)
  - Erythema [Recovering/Resolving]
  - Eyelid exfoliation [Not Recovered/Not Resolved]
  - Unevaluable event [Unknown]
  - Eyelid skin dryness [Not Recovered/Not Resolved]
  - Breast cancer [Not Recovered/Not Resolved]
  - Pruritus [Unknown]
  - Pruritus [Not Recovered/Not Resolved]
  - Product dose omission issue [Unknown]
  - Eye pruritus [Not Recovered/Not Resolved]
  - Periorbital swelling [Unknown]
  - Erythema [Not Recovered/Not Resolved]
  - Angular cheilitis [Unknown]
  - Periorbital pain [Unknown]

NARRATIVE: CASE EVENT DATE: 2020
